FAERS Safety Report 8937673 (Version 1)
Quarter: 2012Q4

REPORT INFORMATION
  Report Type: 
  Country: US (occurrence: US)
  Receive Date: 20121130
  Receipt Date: 20121130
  Transmission Date: 20130627
  Serious: Yes (Other)
  Sender: FDA-Public Use
  Company Number: US-PFIZER INC-2012300507

PATIENT
  Age: 55 Year
  Sex: Male
  Weight: 95.24 kg

DRUGS (5)
  1. LYRICA [Suspect]
     Indication: NERVE PAIN
     Dosage: 300 mg, 2x/day
  2. CELEBREX [Suspect]
     Indication: INFLAMMATION
     Dosage: 200 mg, 2x/day
  3. PERCOCET [Concomitant]
     Indication: PAIN
     Dosage: 10 mg, 4x/day
  4. FENTANYL [Concomitant]
     Indication: BACK PAIN
     Dosage: 75 ug, UNK
  5. SOMA [Concomitant]
     Indication: MUSCLE SPASMS
     Dosage: 350 mg, 4x/day

REACTIONS (2)
  - Fall [Unknown]
  - Head injury [Recovering/Resolving]
